FAERS Safety Report 6077439-4 (Version None)
Quarter: 2009Q1

REPORT INFORMATION
  Report Type: 
  Country: None (occurrence: None)
  Receive Date: 20090213
  Receipt Date: 20081024
  Transmission Date: 20090719
  Serious: No
  Sender: FDA-Public Use
  Company Number: A0753510A

PATIENT
  Sex: Male

DRUGS (1)
  1. TREXIMET [Suspect]

REACTIONS (2)
  - ANXIETY [None]
  - DEPRESSION [None]
